FAERS Safety Report 6965216-9 (Version None)
Quarter: 2010Q3

REPORT INFORMATION
  Report Type: 
  Country: None (occurrence: None)
  Receive Date: 20100903
  Receipt Date: 20100824
  Transmission Date: 20110219
  Serious: Yes (Other)
  Sender: FDA-Public Use
  Company Number: PHHY2010JP56111

PATIENT
  Sex: Male

DRUGS (1)
  1. NEORAL [Suspect]
     Indication: NEPHROPATHY
     Route: 048

REACTIONS (1)
  - INTERSTITIAL LUNG DISEASE [None]
